FAERS Safety Report 15418537 (Version 1)
Quarter: 2018Q3

REPORT INFORMATION
  Report Type: Report from Study
  Country: None (occurrence: US)
  Receive Date: 20180924
  Receipt Date: 20180924
  Transmission Date: 20181010
  Serious: Yes (Hospitalization, Other)
  Sender: FDA-Public Use
  Company Number: US-ABBVIE-18K-163-2460364-00

PATIENT
  Age: 74 Year
  Sex: Female
  Weight: 63.56 kg

DRUGS (1)
  1. HUMIRA [Suspect]
     Active Substance: ADALIMUMAB
     Indication: RHEUMATOID ARTHRITIS
     Route: 058
     Dates: start: 2013, end: 201801

REACTIONS (6)
  - Sinusitis [Recovered/Resolved]
  - White blood cell count increased [Recovering/Resolving]
  - Tuberculosis [Not Recovered/Not Resolved]
  - Dyspnoea [Recovering/Resolving]
  - Rheumatoid arthritis [Unknown]
  - Sinus operation [Unknown]

NARRATIVE: CASE EVENT DATE: 2016
